FAERS Safety Report 4290450-9 (Version None)
Quarter: 2004Q1

REPORT INFORMATION
  Report Type: 
  Country: None (occurrence: None)
  Receive Date: 20040209
  Receipt Date: 20040128
  Transmission Date: 20041129
  Serious: Yes (Hospitalization)
  Sender: FDA-Public Use
  Company Number: 04P-167-0249087-00

PATIENT
  Age: 69 Year
  Sex: Female
  Weight: 50 kg

DRUGS (6)
  1. HUMIRA [Suspect]
     Indication: RHEUMATOID ARTHRITIS
     Dosage: 40 MG, 1 IN 2 WK, SUBCUTANEOUS
     Route: 058
     Dates: start: 20030710, end: 20031214
  2. PREDNISOLONE [Concomitant]
  3. APOREX [Concomitant]
  4. DIHYDROCODEINE [Concomitant]
  5. PARACETAMOL [Concomitant]
  6. ALENDRONATE SODIUM [Concomitant]

REACTIONS (1)
  - HAEMATOMA [None]
